FAERS Safety Report 12433667 (Version 1)
Quarter: 2016Q2

REPORT INFORMATION
  Report Type: Spontaneous
  Country: IN (occurrence: IN)
  Receive Date: 20160603
  Receipt Date: 20160603
  Transmission Date: 20160815
  Serious: Yes (Death, Other)
  Sender: FDA-Public Use
  Company Number: IN-JNJFOC-20150406565

PATIENT

DRUGS (4)
  1. CANAGLIFLOZIN [Suspect]
     Active Substance: CANAGLIFLOZIN
     Indication: TYPE 2 DIABETES MELLITUS
     Dosage: 100 OR 300 MG
     Route: 065
  2. METFORMIN [Concomitant]
     Active Substance: METFORMIN HYDROCHLORIDE
     Indication: TYPE 2 DIABETES MELLITUS
     Route: 065
  3. PIOGLITAZONE. [Concomitant]
     Active Substance: PIOGLITAZONE
     Indication: TYPE 2 DIABETES MELLITUS
     Route: 065
  4. GLIMEPIRIDE. [Concomitant]
     Active Substance: GLIMEPIRIDE
     Indication: TYPE 2 DIABETES MELLITUS
     Route: 065

REACTIONS (30)
  - Micturition disorder [Unknown]
  - Dizziness postural [Unknown]
  - Orthostatic hypotension [Unknown]
  - Adverse drug reaction [Unknown]
  - Genital infection fungal [Unknown]
  - Orthostatic intolerance [Unknown]
  - Urine output increased [Unknown]
  - Vulvovaginitis [Unknown]
  - Hypoglycaemia [Unknown]
  - Dehydration [Unknown]
  - Vaginal infection [Unknown]
  - Pollakiuria [Unknown]
  - Thirst [Unknown]
  - Hypotension [Unknown]
  - Vulvovaginal candidiasis [Unknown]
  - Vulvovaginal mycotic infection [Unknown]
  - Urinary tract infection [Unknown]
  - Nocturia [Unknown]
  - Polydipsia [Unknown]
  - Weight decreased [Unknown]
  - Micturition urgency [Unknown]
  - Presyncope [Unknown]
  - Syncope [Unknown]
  - Vulvovaginal pruritus [Unknown]
  - Death [Fatal]
  - Dry mouth [Unknown]
  - Tongue dry [Unknown]
  - Dry throat [Unknown]
  - Polyuria [Unknown]
  - Balanoposthitis [Unknown]
